FAERS Safety Report 5296803-4 (Version None)
Quarter: 2007Q2

REPORT INFORMATION
  Report Type: 
  Country: None (occurrence: None)
  Receive Date: 20070413
  Receipt Date: 20070404
  Transmission Date: 20071010
  Serious: Yes (Hospitalization, Disabling, Other)
  Sender: FDA-Public Use
  Company Number: GB-PFIZER INC-2007027326

PATIENT
  Age: 50 Year
  Sex: Female
  Weight: 51 kg

DRUGS (2)
  1. HYDROCORTISONE SODIUM SUCCINATE [Suspect]
     Indication: PERIARTHRITIS
     Route: 030
  2. DOPAMINE HCL [Suspect]
     Indication: PERIARTHRITIS
     Route: 030

REACTIONS (1)
  - POST VIRAL FATIGUE SYNDROME [None]
